FAERS Safety Report 6308812-4 (Version None)
Quarter: 2009Q3

REPORT INFORMATION
  Report Type: 
  Country: None (occurrence: None)
  Receive Date: 20090813
  Receipt Date: 20080828
  Transmission Date: 20100115
  Serious: No
  Sender: FDA-Public Use
  Company Number: US-ALLERGAN-0810857US

PATIENT
  Sex: Female

DRUGS (6)
  1. COMBIGAN [Suspect]
     Indication: GLAUCOMA
     Dosage: 1 GTT, BID
     Route: 047
     Dates: start: 20080825, end: 20080828
  2. ATENOLOL [Concomitant]
  3. TRIAMTERENE [Concomitant]
  4. IMDUR [Concomitant]
     Dosage: UNK, QD
  5. VALIUM [Concomitant]
  6. LUMIGAN [Concomitant]
     Dosage: 1 GTT, QHS

REACTIONS (2)
  - DIZZINESS [None]
  - EYE PAIN [None]
